FAERS Safety Report 6760558-4 (Version None)
Quarter: 2010Q2

REPORT INFORMATION
  Report Type: 
  Country: None (occurrence: None)
  Receive Date: 20100608
  Receipt Date: 20100527
  Transmission Date: 20101027
  Serious: Yes (Other)
  Sender: FDA-Public Use
  Company Number: JP-PFIZER INC-2010067708

PATIENT

DRUGS (1)
  1. DOXAZOSIN MESYLATE [Suspect]
     Dosage: UNK

REACTIONS (1)
  - CALCULUS URINARY [None]
